FAERS Safety Report 11912223 (Version 6)
Quarter: 2016Q2

REPORT INFORMATION
  Report Type: Report from Study
  Country: BR (occurrence: BR)
  Receive Date: 20160113
  Receipt Date: 20160617
  Transmission Date: 20160815
  Serious: Yes (Other)
  Sender: FDA-Public Use
  Company Number: BR-AMGEN-BRACT2015136437

PATIENT
  Age: 86 Year
  Sex: Female
  Weight: 51.7 kg

DRUGS (5)
  1. AMOXICILLIN. [Concomitant]
     Active Substance: AMOXICILLIN
     Indication: RHINITIS
     Dosage: 500 MG, TID
     Dates: start: 20150402, end: 20150415
  2. DENOSUMAB [Suspect]
     Active Substance: DENOSUMAB
     Indication: OSTEOPOROSIS POSTMENOPAUSAL
     Dosage: 1 ML, UNK
     Route: 058
     Dates: start: 20141105, end: 20150514
  3. CALCIUM [Concomitant]
     Active Substance: CALCIUM
     Dosage: 250 MG, UNK
     Route: 048
     Dates: start: 20131005, end: 20150708
  4. AMG 785 [Suspect]
     Active Substance: ROMOSOZUMAB
     Indication: OSTEOPOROSIS POSTMENOPAUSAL
     Dosage: 210 MG, UNK
     Route: 058
     Dates: start: 20131107, end: 20141013
  5. VITAMIN D [Concomitant]
     Active Substance: CHOLECALCIFEROL
     Dosage: 200 IU, UNK
     Route: 048
     Dates: start: 20131005, end: 20150708

REACTIONS (1)
  - Angiocentric lymphoma [Not Recovered/Not Resolved]

NARRATIVE: CASE EVENT DATE: 20150810
